FAERS Safety Report 7578381-X (Version None)
Quarter: 2011Q2

REPORT INFORMATION
  Report Type: 
  Country: None (occurrence: None)
  Receive Date: 20110621
  Receipt Date: 20110616
  Transmission Date: 20111010
  Serious: Yes (Other)
  Sender: FDA-Public Use
  Company Number: 2011SP027946

PATIENT
  Age: 21 Year
  Sex: Female

DRUGS (6)
  1. THIOPENTAL SODIUM [Suspect]
     Indication: PRODUCT USED FOR UNKNOWN INDICATION
  2. SYNTOCINON [Concomitant]
  3. ROCURONIUM BROMIDE [Suspect]
     Indication: SENSORY DISTURBANCE
     Dosage: 0.5 MG;ONCE
  4. CEFAZOLIN SODIUM [Concomitant]
  5. SODIUM CITRATE [Concomitant]
  6. DESFLURANE [Suspect]
     Indication: PRODUCT USED FOR UNKNOWN INDICATION

REACTIONS (2)
  - BRONCHIAL SECRETION RETENTION [None]
  - ATELECTASIS [None]
